FAERS Safety Report 25270627 (Version 6)
Quarter: 2025Q3

REPORT INFORMATION
  Report Type: Spontaneous
  Country: AR (occurrence: AR)
  Receive Date: 20250505
  Receipt Date: 20250916
  Transmission Date: 20251020
  Serious: Yes (Other)
  Sender: SANDOZ
  Company Number: AR-002147023-NVSC2025AR034303

PATIENT
  Age: 72 Year
  Sex: Female

DRUGS (3)
  1. FULVESTRANT [Suspect]
     Active Substance: FULVESTRANT
     Indication: Breast cancer metastatic
     Dosage: 1 DOSAGE FORM, QMO
     Route: 058
     Dates: start: 20230929, end: 20250516
  2. KISQALI [Suspect]
     Active Substance: RIBOCICLIB SUCCINATE
     Indication: Breast cancer metastatic
     Dosage: 600 MG, QD
     Route: 048
     Dates: start: 20230929, end: 20250516
  3. LETROZOLE [Suspect]
     Active Substance: LETROZOLE
     Indication: Breast cancer metastatic
     Route: 065
     Dates: end: 20250516

REACTIONS (4)
  - Metastases to liver [Unknown]
  - Diabetes mellitus [Unknown]
  - Metastases to bone [Unknown]
  - Alopecia [Recovered/Resolved]

NARRATIVE: CASE EVENT DATE: 20240401
